FAERS Safety Report 8910643 (Version 1)
Quarter: 2012Q4

REPORT INFORMATION
  Report Type: Spontaneous
  Country: TW (occurrence: None)
  Receive Date: 20121108
  Receipt Date: 20121108
  Transmission Date: 20130627
  Serious: Yes (Life-Threatening, Hospitalization)
  Sender: FDA-Public Use
  Company Number: 2012/162

PATIENT
  Age: 30 Year
  Sex: Female

DRUGS (2)
  1. VENLAFAXINE [Suspect]
     Dosage: 1 month dose
  2. BUPROPION [Suspect]
     Dosage: 1 month dose

REACTIONS (20)
  - Necrosis [None]
  - Cardiotoxicity [None]
  - Overdose [None]
  - Suicide attempt [None]
  - Myoclonus [None]
  - Pyrexia [None]
  - Somnolence [None]
  - Confusional state [None]
  - Respiratory distress [None]
  - Blood pressure decreased [None]
  - Oxygen saturation decreased [None]
  - Leukocytosis [None]
  - Serotonin syndrome [None]
  - Blood creatinine increased [None]
  - Alanine aminotransferase increased [None]
  - Dyskinesia [None]
  - Akathisia [None]
  - Choreoathetosis [None]
  - Memory impairment [None]
  - Speech disorder [None]
